FAERS Safety Report 8582438-4 (Version None)
Quarter: 2012Q3

REPORT INFORMATION
  Report Type: 
  Country: None (occurrence: None)
  Receive Date: 20120727
  Receipt Date: 20120716
  Transmission Date: 20120928
  Serious: Yes (Hospitalization, Other)
  Sender: FDA-Public Use
  Company Number: 2012P1049781

PATIENT
  Age: 65 Year
  Sex: Male

DRUGS (4)
  1. METRONIDAZOLE [Suspect]
     Indication: OESOPHAGEAL PERFORATION
  2. LEVOFLOXACIN [Suspect]
     Indication: OESOPHAGEAL PERFORATION
  3. VANCOMYCIN [Suspect]
     Indication: OESOPHAGEAL PERFORATION
  4. FLUCONAZOLE [Suspect]

REACTIONS (9)
  - STRIDOR [None]
  - DRUG RASH WITH EOSINOPHILIA AND SYSTEMIC SYMPTOMS [None]
  - METABOLIC ACIDOSIS [None]
  - ARRHYTHMIA SUPRAVENTRICULAR [None]
  - TACHYCARDIA [None]
  - GENERAL PHYSICAL HEALTH DETERIORATION [None]
  - TACHYPNOEA [None]
  - BLOOD CREATININE INCREASED [None]
  - MENTAL STATUS CHANGES [None]
